FAERS Safety Report 7554746-7 (Version None)
Quarter: 2011Q2

REPORT INFORMATION
  Report Type: 
  Country: None (occurrence: None)
  Receive Date: 20110617
  Receipt Date: 20110608
  Transmission Date: 20111010
  Serious: No
  Sender: FDA-Public Use
  Company Number: US-JNJFOC-20110604955

PATIENT
  Sex: Male
  Weight: 65.77 kg

DRUGS (7)
  1. DURAGESIC-100 [Suspect]
     Indication: BACK PAIN
     Route: 062
     Dates: start: 20110101, end: 20110101
  2. FENTANYL-100 [Suspect]
     Indication: BACK PAIN
     Route: 062
     Dates: start: 20100101
  3. LISINOPRIL [Concomitant]
     Indication: HYPERTENSION
     Route: 065
  4. MORPHINE SULFATE [Concomitant]
     Indication: PAIN
     Route: 048
  5. NITROGLYCERIN [Concomitant]
     Indication: HYPERTENSION
     Route: 065
  6. METOPROLOL TARTRATE [Concomitant]
     Indication: HYPERTENSION
     Route: 065
  7. HYDROCHLOROTHIAZIDE [Concomitant]
     Indication: HYPERTENSION
     Route: 065

REACTIONS (3)
  - DRUG INEFFECTIVE [None]
  - HYPERTENSION [None]
  - INAPPROPRIATE SCHEDULE OF DRUG ADMINISTRATION [None]
